FAERS Safety Report 19056464 (Version 1)
Quarter: 2021Q1

REPORT INFORMATION
  Report Type: Report from Study
  Country: KR (occurrence: KR)
  Receive Date: 20210324
  Receipt Date: 20210324
  Transmission Date: 20210420
  Serious: Yes (Hospitalization)
  Sender: FDA-Public Use
  Company Number: KR-TAKEDA-2021TUS018938

PATIENT
  Age: 66 Year
  Sex: Male

DRUGS (7)
  1. EPERIL M [Concomitant]
     Indication: NEURALGIA
     Dosage: 50 MILLIGRAM, TID
     Route: 048
     Dates: start: 201909
  2. PREGABALIN. [Concomitant]
     Active Substance: PREGABALIN
     Indication: DYSTONIA
     Dosage: 75 MILLIGRAM, QD
     Route: 048
     Dates: start: 2018
  3. MOLSITON [Concomitant]
     Indication: CORONARY ARTERY DISEASE
     Dosage: 2 MILLIGRAM, BID
     Route: 048
     Dates: start: 20170601
  4. HARNAL [Concomitant]
     Active Substance: TAMSULOSIN HYDROCHLORIDE
     Indication: BENIGN PROSTATIC HYPERPLASIA
     Dosage: 0.2 MILLIGRAM, QD
     Route: 048
     Dates: start: 20111121
  5. PONATINIB [Suspect]
     Active Substance: PONATINIB
     Indication: CHRONIC MYELOID LEUKAEMIA
     Dosage: 30 MILLIGRAM, QD
     Route: 048
     Dates: start: 20210112
  6. EPERIL M [Concomitant]
     Indication: PROPHYLAXIS
  7. ZEMIMET [Concomitant]
     Indication: DIABETES MELLITUS
     Dosage: 50 MILLIGRAM, QD
     Route: 048
     Dates: start: 201912

REACTIONS (1)
  - Gastric ulcer [Recovered/Resolved]

NARRATIVE: CASE EVENT DATE: 20210130
